FAERS Safety Report 15890813 (Version 4)
Quarter: 2019Q1

REPORT INFORMATION
  Report Type: Report from Study
  Country: US (occurrence: US)
  Receive Date: 20190130
  Receipt Date: 20190315
  Transmission Date: 20190417
  Serious: No
  Sender: FDA-Public Use
  Company Number: PHEH2019US004084

PATIENT
  Sex: Male

DRUGS (1)
  1. GILENYA [Suspect]
     Active Substance: FINGOLIMOD HYDROCHLORIDE
     Indication: MULTIPLE SCLEROSIS
     Dosage: 0.5 MG, QD
     Route: 048

REACTIONS (9)
  - Vomiting [Unknown]
  - Muscular weakness [Unknown]
  - Erectile dysfunction [Unknown]
  - Vision blurred [Unknown]
  - Nausea [Unknown]
  - Eye irritation [Unknown]
  - Tremor [Unknown]
  - Morning sickness [Unknown]
  - Visual impairment [Unknown]
